FAERS Safety Report 5023440-9 (Version None)
Quarter: 2006Q2

REPORT INFORMATION
  Report Type: 
  Country: None (occurrence: None)
  Receive Date: 20060612
  Receipt Date: 20060331
  Transmission Date: 20061013
  Serious: Yes (Other)
  Sender: FDA-Public Use
  Company Number: GB-SANOFI-SYNTHELABO-A01200602629

PATIENT
  Age: 70 Year
  Sex: Female

DRUGS (7)
  1. PARACETAMOL [Concomitant]
     Route: 065
  2. RALITRIXATE [Concomitant]
     Route: 065
  3. ELOXATIN [Suspect]
     Route: 065
     Dates: start: 20060101, end: 20060101
  4. LOPERAMIDE [Concomitant]
     Route: 065
  5. NIFEDIPINE [Concomitant]
     Route: 065
  6. PREDNISOLONE [Concomitant]
     Route: 065
     Dates: start: 20060202
  7. ANTIBIOTICS [Concomitant]
     Route: 065

REACTIONS (5)
  - BLOOD DISORDER [None]
  - BLOOD PRESSURE AMBULATORY INCREASED [None]
  - CONDITION AGGRAVATED [None]
  - INFECTION [None]
  - PROTEINURIA [None]
